FAERS Safety Report 13898528 (Version 1)
Quarter: 2017Q3

REPORT INFORMATION
  Report Type: Spontaneous
  Country: US (occurrence: None)
  Receive Date: 20170823
  Receipt Date: 20170823
  Transmission Date: 20171127
  Serious: Yes (Hospitalization)
  Sender: FDA-Public Use
  Company Number: None

PATIENT
  Age: 54 Year
  Sex: Female

DRUGS (8)
  1. VELAFAXINE HCL ER 75MG ZYDUS [Concomitant]
     Active Substance: VENLAFAXINE HYDROCHLORIDE
  2. TALTZ [Suspect]
     Active Substance: IXEKIZUMAB
     Indication: PSORIASIS
     Dosage: 80MG Q4 WKS SQ
     Route: 058
     Dates: start: 201612
  3. OXYBUTYNIN [Concomitant]
     Active Substance: OXYBUTYNIN
  4. MULIT VIT [Concomitant]
  5. PROBIOTIC [Concomitant]
     Active Substance: PROBIOTICS NOS
  6. VITAMIN D [Concomitant]
     Active Substance: CHOLECALCIFEROL
  7. LORADEMED [Concomitant]
  8. FIBER [Concomitant]
     Active Substance: PSYLLIUM HUSK

REACTIONS (1)
  - Colitis ischaemic [None]

NARRATIVE: CASE EVENT DATE: 20170705
